FAERS Safety Report 19235197 (Version 4)
Quarter: 2021Q4

REPORT INFORMATION
  Report Type: Spontaneous
  Country: CO (occurrence: CO)
  Receive Date: 20210509
  Receipt Date: 20211130
  Transmission Date: 20220303
  Serious: Yes (Life-Threatening, Hospitalization, Other)
  Sender: FDA-Public Use
  Company Number: CO-PFIZER INC-2021485284

PATIENT
  Age: 41 Year
  Sex: Female

DRUGS (1)
  1. ENBREL [Suspect]
     Active Substance: ETANERCEPT
     Indication: Rheumatoid arthritis
     Dosage: 50 MG, EVERY 8 DAYS
     Route: 058
     Dates: start: 2018

REACTIONS (7)
  - Dehydration [Unknown]
  - Diarrhoea [Unknown]
  - White blood cell count decreased [Unknown]
  - Decreased immune responsiveness [Unknown]
  - Off label use [Unknown]
  - Gastric infection [Unknown]
  - Septic shock [Unknown]

NARRATIVE: CASE EVENT DATE: 20180101
